FAERS Safety Report 8484546-5 (Version None)
Quarter: 2012Q3

REPORT INFORMATION
  Report Type: 
  Country: None (occurrence: None)
  Receive Date: 20120703
  Receipt Date: 20120627
  Transmission Date: 20120928
  Serious: Yes (Other)
  Sender: FDA-Public Use
  Company Number: US-PFIZER INC-2012155178

PATIENT
  Sex: Female
  Weight: 68 kg

DRUGS (11)
  1. FLEXERIL [Concomitant]
     Indication: MUSCLE SPASMS
     Dosage: UNK
  2. GEMFIBROZIL [Concomitant]
     Indication: BLOOD CHOLESTEROL ABNORMAL
     Dosage: UNK
  3. DILTIAZEM [Concomitant]
     Indication: PALPITATIONS
     Dosage: 180 MG, DAILY
     Route: 048
  4. EFFEXOR XR [Suspect]
     Indication: DEPRESSION
     Dosage: 300 MG IN A DAY
  5. NORCO [Concomitant]
     Indication: INTERVERTEBRAL DISC PROTRUSION
     Dosage: 10/325 MG, 4X/DAY
  6. NORCO [Concomitant]
     Indication: MUSCULOSKELETAL STIFFNESS
  7. KLONOPIN [Suspect]
     Indication: ANXIETY
     Dosage: 1 MG, 3X/DAY
  8. CHLORTHALIDONE [Concomitant]
     Indication: HYPERTENSION
     Dosage: 25 MG, DAILY
  9. NEURONTIN [Concomitant]
     Indication: NERVE INJURY
     Dosage: UNK
  10. EFFEXOR XR [Suspect]
     Dosage: 150 MG IN A DAY
     Dates: start: 20120601
  11. NAPROXEN [Suspect]
     Indication: ARTHRITIS
     Dosage: UNK

REACTIONS (11)
  - HAEMATOCHEZIA [None]
  - FALL [None]
  - EPISTAXIS [None]
  - LOW DENSITY LIPOPROTEIN INCREASED [None]
  - HYSTERECTOMY [None]
  - INSOMNIA [None]
  - DEPRESSION [None]
  - ANXIETY [None]
  - PANIC REACTION [None]
  - HIGH DENSITY LIPOPROTEIN DECREASED [None]
  - FEELING ABNORMAL [None]
